FAERS Safety Report 7278468-5 (Version None)
Quarter: 2011Q1

REPORT INFORMATION
  Report Type: 
  Country: None (occurrence: None)
  Receive Date: 20110207
  Receipt Date: 20110127
  Transmission Date: 20110831
  Serious: Yes (Hospitalization)
  Sender: FDA-Public Use
  Company Number: NL-BAYER-2011-008549

PATIENT
  Sex: Male

DRUGS (2)
  1. ASPRO [Suspect]
  2. KLACID [Suspect]
     Indication: MYCOPLASMA TEST POSITIVE
     Dosage: UNK

REACTIONS (3)
  - LIVER FUNCTION TEST ABNORMAL [None]
  - WEIGHT DECREASED [None]
  - RASH [None]
